FAERS Safety Report 23878546 (Version 1)
Quarter: 2024Q2

REPORT INFORMATION
  Report Type: Spontaneous
  Country: US (occurrence: None)
  Receive Date: 20240520
  Receipt Date: 20240520
  Transmission Date: 20240716
  Serious: Yes (Other)
  Sender: FDA-Public Use
  Company Number: None

PATIENT
  Age: 68 Year
  Sex: Male
  Weight: 91.8 kg

DRUGS (7)
  1. REPATHA [Suspect]
     Active Substance: EVOLOCUMAB
  2. BYSTOLIC [Concomitant]
     Active Substance: NEBIVOLOL HYDROCHLORIDE
  3. PLAVIX [Concomitant]
     Active Substance: CLOPIDOGREL BISULFATE
  4. FAMOTIDINE [Concomitant]
     Active Substance: FAMOTIDINE
  5. PANTOPRAZOLE [Concomitant]
     Active Substance: PANTOPRAZOLE
  6. Vallegra [Concomitant]
  7. NASACORT [Concomitant]
     Active Substance: TRIAMCINOLONE ACETONIDE

REACTIONS (6)
  - Influenza like illness [None]
  - Nasal congestion [None]
  - Ear pain [None]
  - Tinnitus [None]
  - Disturbance in attention [None]
  - Sleep disorder [None]

NARRATIVE: CASE EVENT DATE: 20240302
